FAERS Safety Report 21961682 (Version 2)
Quarter: 2023Q1

REPORT INFORMATION
  Report Type: Spontaneous
  Country: US (occurrence: US)
  Receive Date: 20230207
  Receipt Date: 20230215
  Transmission Date: 20230417
  Serious: No
  Sender: FDA-Public Use
  Company Number: US-TEVA-2023-US-2849776

PATIENT
  Sex: Female

DRUGS (3)
  1. NORTRIPTYLINE [Suspect]
     Active Substance: NORTRIPTYLINE
     Indication: Neuropathy peripheral
     Dosage: 50 MILLIGRAM DAILY; 25 MILLIGRAM
     Route: 065
  2. NORTRIPTYLINE [Suspect]
     Active Substance: NORTRIPTYLINE
     Dosage: 50 MILLIGRAM DAILY; 50 MILLIGRAM
     Route: 065
     Dates: start: 2016
  3. NORTRIPTYLINE [Suspect]
     Active Substance: NORTRIPTYLINE
     Dosage: 75 MILLIGRAM DAILY; TWO 25 MG PILLS, AND AN EXTRA 25 FOR THE EVENINGS
     Route: 065
     Dates: start: 202212

REACTIONS (9)
  - Withdrawal syndrome [Recovering/Resolving]
  - Therapeutic product effect incomplete [Unknown]
  - Malaise [Unknown]
  - Paraesthesia [Unknown]
  - Nausea [Unknown]
  - Feeling abnormal [Unknown]
  - Mood swings [Unknown]
  - Irritability [Unknown]
  - Product quality issue [Unknown]

NARRATIVE: CASE EVENT DATE: 20221101
